FAERS Safety Report 8061974-3 (Version None)
Quarter: 2012Q1

REPORT INFORMATION
  Report Type: 
  Country: None (occurrence: None)
  Receive Date: 20120118
  Receipt Date: 20120109
  Transmission Date: 20120608
  Serious: Yes (Hospitalization, Other)
  Sender: FDA-Public Use
  Company Number: JPI-P-019091

PATIENT
  Age: 29 Year
  Sex: Female

DRUGS (5)
  1. XYREM [Suspect]
     Indication: NARCOLEPSY
     Dosage: SEE IMAGE
     Route: 048
     Dates: start: 20110101, end: 20111228
  2. XYREM [Suspect]
     Indication: NARCOLEPSY
     Dosage: SEE IMAGE
     Route: 048
     Dates: start: 20111230, end: 20120103
  3. XYREM [Suspect]
     Indication: NARCOLEPSY
     Dosage: SEE IMAGE
     Route: 048
     Dates: start: 20111229, end: 20111229
  4. XYREM [Suspect]
     Indication: NARCOLEPSY
     Dosage: SEE IMAGE
     Route: 048
     Dates: start: 20110808, end: 20110101
  5. XYREM [Suspect]
     Indication: NARCOLEPSY
     Dosage: SEE IMAGE
     Route: 048
     Dates: start: 20120104

REACTIONS (12)
  - COMA [None]
  - RETCHING [None]
  - PUPILLARY DISORDER [None]
  - SUFFOCATION FEELING [None]
  - WEIGHT INCREASED [None]
  - INSOMNIA [None]
  - RESPIRATORY RATE DECREASED [None]
  - DYSPNOEA [None]
  - NAUSEA [None]
  - DRUG INEFFECTIVE [None]
  - VOMITING [None]
  - NIGHT SWEATS [None]
